FAERS Safety Report 14607367 (Version 3)
Quarter: 2018Q2

REPORT INFORMATION
  Report Type: Spontaneous
  Country: US (occurrence: US)
  Receive Date: 20180307
  Receipt Date: 20180622
  Transmission Date: 20180711
  Serious: No
  Sender: FDA-Public Use
  Company Number: US-PFIZER INC-2018094445

PATIENT
  Age: 41 Year
  Sex: Female

DRUGS (1)
  1. DEPO-PROVERA [Suspect]
     Active Substance: MEDROXYPROGESTERONE ACETATE
     Indication: MENORRHAGIA
     Dosage: 1 SHOT EVERY 3 MONTHS
     Dates: start: 200904, end: 201711

REACTIONS (15)
  - Dizziness [Not Recovered/Not Resolved]
  - Vomiting [Recovered/Resolved]
  - Depressed mood [Unknown]
  - Paranoia [Unknown]
  - Mood swings [Unknown]
  - Menopause [Unknown]
  - Hot flush [Unknown]
  - Product use in unapproved indication [Recovered/Resolved]
  - Gait disturbance [Recovered/Resolved]
  - Nausea [Not Recovered/Not Resolved]
  - Emotional disorder [Unknown]
  - Abnormal behaviour [Unknown]
  - Vaginal haemorrhage [Not Recovered/Not Resolved]
  - Hyperhidrosis [Unknown]
  - Intentional product misuse [Not Recovered/Not Resolved]

NARRATIVE: CASE EVENT DATE: 200904
